FAERS Safety Report 24686027 (Version 1)
Quarter: 2024Q4

REPORT INFORMATION
  Report Type: Spontaneous
  Country: FR (occurrence: FR)
  Receive Date: 20241202
  Receipt Date: 20241202
  Transmission Date: 20250115
  Serious: Yes (Other)
  Sender: TEVA
  Company Number: None

PATIENT
  Age: 59 Year
  Sex: Male
  Weight: 75 kg

DRUGS (11)
  1. PEMETREXED [Suspect]
     Active Substance: PEMETREXED
     Indication: Adenocarcinoma
     Dosage: TIME INTERVAL: CYCLICAL
     Route: 042
     Dates: start: 20231129, end: 20240412
  2. CARBOPLATIN [Suspect]
     Active Substance: CARBOPLATIN
     Indication: Adenocarcinoma
     Dosage: TIME INTERVAL: TOTAL
     Route: 042
     Dates: start: 202312
  3. CARBOPLATIN [Suspect]
     Active Substance: CARBOPLATIN
     Indication: Adenocarcinoma
     Dosage: TIME INTERVAL: TOTAL
     Route: 042
     Dates: start: 20240202
  4. CARBOPLATIN [Suspect]
     Active Substance: CARBOPLATIN
     Indication: Adenocarcinoma
     Dosage: TIME INTERVAL: TOTAL
     Route: 042
     Dates: start: 202401
  5. CARBOPLATIN [Suspect]
     Active Substance: CARBOPLATIN
     Indication: Adenocarcinoma
     Dosage: TIME INTERVAL: TOTAL
     Route: 042
     Dates: start: 20231129
  6. PREDNISONE [Suspect]
     Active Substance: PREDNISONE
     Indication: Premedication
     Dosage: TIME INTERVAL: CYCLICAL
     Route: 048
     Dates: start: 20231128
  7. EMEND [Suspect]
     Active Substance: APREPITANT
     Indication: Premedication
     Dosage: DAY 2 OF THE TREATMENT
     Route: 048
  8. EMEND [Suspect]
     Active Substance: APREPITANT
     Indication: Premedication
     Dosage: DAY 3 OF THE TREATMENT
     Route: 048
  9. EMEND [Suspect]
     Active Substance: APREPITANT
     Indication: Premedication
     Dosage: TIME INTERVAL: CYCLICAL
     Route: 048
     Dates: start: 20231129
  10. PEMBROLIZUMAB [Suspect]
     Active Substance: PEMBROLIZUMAB
     Indication: Adenocarcinoma
     Dosage: TIME INTERVAL: CYCLICAL
     Route: 042
     Dates: start: 20231129, end: 20240412
  11. ONDANSETRON [Suspect]
     Active Substance: ONDANSETRON
     Indication: Prophylaxis of nausea and vomiting
     Dosage: TIME INTERVAL: CYCLICAL: FOR 5 DAYS AFTER CHEMO,
     Route: 048
     Dates: start: 202311

REACTIONS (1)
  - Pulmonary embolism [Recovering/Resolving]

NARRATIVE: CASE EVENT DATE: 20240102
